FAERS Safety Report 8777929 (Version 1)
Quarter: 2012Q4

REPORT INFORMATION
  Report Type: 
  Country: BR (occurrence: BR)
  Receive Date: 20120912
  Receipt Date: 20120912
  Transmission Date: 20130627
  Serious: Yes (Other)
  Sender: FDA-Public Use
  Company Number: PHHY2012BR078140

PATIENT
  Sex: Male

DRUGS (6)
  1. DIOVAN HCT [Suspect]
     Indication: BLOOD PRESSURE
     Dosage: 1 DF (160 mg vals/12.5 mg hydr) at morning
  2. DIOVAN HCT [Suspect]
     Dosage: 0.5 DF, UNK
  3. LOSARTAN [Suspect]
     Indication: BLOOD PRESSURE
     Dosage: 2 DF, BID (1 tablet at morning and 1 tablet at night)
  4. ENALAPRIL [Suspect]
     Indication: HYPERTENSION
     Dosage: 1 DF, BID (1 tablet morning and 1 tablet at afternoon)
  5. CAPTOPRIL [Suspect]
     Indication: HYPERTENSION
     Dosage: 1 DF, BID (1 tablet morning and 1 tablet at afternoon)
  6. ATENOLOL [Suspect]

REACTIONS (4)
  - Arrhythmia [Recovering/Resolving]
  - Heart rate decreased [Recovering/Resolving]
  - Cough [Recovering/Resolving]
  - Throat irritation [Recovering/Resolving]
